FAERS Safety Report 4463155-9 (Version None)
Quarter: 2004Q3

REPORT INFORMATION
  Report Type: 
  Country: None (occurrence: None)
  Receive Date: 20040930
  Receipt Date: 20040802
  Transmission Date: 20050211
  Serious: Yes (Life-Threatening, Hospitalization, Disabling)
  Sender: FDA-Public Use
  Company Number: US-MERCK-0408USA00216

PATIENT
  Age: 84 Year
  Sex: Female

DRUGS (9)
  1. ACETAMINOPHEN [Concomitant]
     Route: 065
  2. ASPIRIN [Concomitant]
     Route: 065
  3. BUSPAR [Concomitant]
     Route: 065
  4. COREG [Concomitant]
     Route: 065
  5. ARICEPT [Concomitant]
     Route: 065
  6. LASIX [Concomitant]
     Route: 065
  7. GLUCOSAMINE SULFATE [Concomitant]
     Route: 065
  8. HYZAAR [Suspect]
     Indication: HYPERTENSION
     Route: 048
     Dates: start: 20030101
  9. ZOCOR [Concomitant]
     Route: 048

REACTIONS (5)
  - ASTHENIA [None]
  - FLUID OVERLOAD [None]
  - PULMONARY OEDEMA [None]
  - RASH [None]
  - VOMITING [None]
